FAERS Safety Report 5575090-3 (Version None)
Quarter: 2007Q4

REPORT INFORMATION
  Report Type: 
  Country: None (occurrence: None)
  Receive Date: 20071130
  Receipt Date: 20070919
  Transmission Date: 20080405
  Serious: No
  Sender: FDA-Public Use
  Company Number: PHEH2007US12675

PATIENT
  Sex: Female

DRUGS (1)
  1. TEKTURNA [Suspect]
     Indication: HYPERTENSION
     Dosage: 150 MG UNK ORAL
     Route: 048
     Dates: start: 20070912

REACTIONS (2)
  - EYE PAIN [None]
  - OCULAR HYPERAEMIA [None]
